FAERS Safety Report 8035493-4 (Version None)
Quarter: 2012Q1

REPORT INFORMATION
  Report Type: 
  Country: None (occurrence: None)
  Receive Date: 20120110
  Receipt Date: 20120110
  Transmission Date: 20120608
  Serious: Yes (Hospitalization)
  Sender: FDA-Public Use
  Company Number: None

PATIENT
  Age: 54 Year
  Sex: Male
  Weight: 66.8 kg

DRUGS (1)
  1. EMTRICITABINE/TENOFOVIR DISOPROXIL FUMARATE [Suspect]
     Indication: HIV INFECTION
     Dosage: 1 TAB EVERY DAY PO
     Route: 048
     Dates: start: 20100105, end: 20110804

REACTIONS (3)
  - RENAL FAILURE ACUTE [None]
  - HAEMODIALYSIS [None]
  - FANCONI SYNDROME [None]
